FAERS Safety Report 10188447 (Version 1)
Quarter: 2014Q2

REPORT INFORMATION
  Report Type: Spontaneous
  Country: US (occurrence: US)
  Receive Date: 20140522
  Receipt Date: 20140522
  Transmission Date: 20141212
  Serious: No
  Sender: FDA-Public Use
  Company Number: US-SA-2014SA047548

PATIENT
  Sex: Male

DRUGS (4)
  1. LANTUS SOLOSTAR [Suspect]
     Indication: DIABETES MELLITUS
     Route: 058
     Dates: start: 2009
  2. LANTUS SOLOSTAR [Suspect]
     Indication: DIABETES MELLITUS
     Route: 065
  3. SOLOSTAR [Concomitant]
     Dates: start: 2009
  4. SOLOSTAR [Concomitant]

REACTIONS (2)
  - Hearing impaired [Not Recovered/Not Resolved]
  - Expired product administered [Unknown]
